FAERS Safety Report 20557316 (Version 1)
Quarter: 2022Q1

REPORT INFORMATION
  Report Type: Spontaneous
  Country: US (occurrence: US)
  Receive Date: 20220307
  Receipt Date: 20220307
  Transmission Date: 20220423
  Serious: Yes (Other)
  Sender: FDA-Public Use
  Company Number: US-PFIZER INC-2021537632

PATIENT
  Age: 33 Year
  Sex: Male

DRUGS (1)
  1. BENEFIX [Suspect]
     Active Substance: COAGULATION FACTOR IX RECOMBINANT HUMAN\ISOPROPYL ALCOHOL
     Indication: Factor IX deficiency
     Dosage: 10000 IU, 2X/WEEK, (3000UNIT/INFUSE 10,000 UNITS (+/-10%) INTRAVENOUSLY 2 TIMES A WEEK)
     Route: 042

REACTIONS (1)
  - Haemarthrosis [Unknown]
